FAERS Safety Report 4957722-3 (Version None)
Quarter: 2006Q1

REPORT INFORMATION
  Report Type: 
  Country: None (occurrence: None)
  Receive Date: 20060324
  Receipt Date: 20060313
  Transmission Date: 20060701
  Serious: No
  Sender: FDA-Public Use
  Company Number: US-2006-005545

PATIENT
  Age: 59 Year
  Sex: Female

DRUGS (8)
  1. BETASERON [Suspect]
     Indication: MULTIPLE SCLEROSIS
     Dosage: 8 MIU, EVERY 2D, SUBCUTANEOUS
     Route: 058
     Dates: start: 19960122
  2. NEURONTIN [Concomitant]
  3. TARKA (TRANDOLAPRIL) [Concomitant]
  4. DETROL [Concomitant]
  5. TOPAMAX [Concomitant]
  6. PREDNISONE [Concomitant]
  7. DARVOCET-N (DEXTROPROOXYPHENE NAPSILATE) [Concomitant]
  8. LEXAPRO [Concomitant]

REACTIONS (4)
  - BALANCE DISORDER [None]
  - FATIGUE [None]
  - INCORRECT DOSE ADMINISTERED [None]
  - PAIN [None]
